FAERS Safety Report 13821902 (Version 5)
Quarter: 2018Q1

REPORT INFORMATION
  Report Type: Report from Study
  Country: US (occurrence: US)
  Receive Date: 20170801
  Receipt Date: 20180115
  Transmission Date: 20180508
  Serious: Yes (Death, Hospitalization)
  Sender: FDA-Public Use
  Company Number: US-JNJFOC-20170800019

PATIENT
  Sex: Male

DRUGS (19)
  1. ZOFRAN [Concomitant]
     Active Substance: ONDANSETRON HYDROCHLORIDE
  2. MILK OF MAGNESIA [Concomitant]
     Active Substance: MAGNESIUM HYDROXIDE
  3. IRON [Concomitant]
     Active Substance: IRON
  4. IMBRUVICA [Suspect]
     Active Substance: IBRUTINIB
     Indication: CHRONIC LYMPHOCYTIC LEUKAEMIA
     Route: 048
     Dates: start: 20170421
  5. HYOSCYAMINE. [Concomitant]
     Active Substance: HYOSCYAMINE
  6. AMANTADINE. [Concomitant]
     Active Substance: AMANTADINE HYDROCHLORIDE
  7. MYCOPHENOLATE MOFETIL. [Concomitant]
     Active Substance: MYCOPHENOLATE MOFETIL
  8. MAGNESIUM OXIDE. [Concomitant]
     Active Substance: MAGNESIUM OXIDE
  9. NITROFURANTOIN MACROCRYSTALS [Concomitant]
     Active Substance: NITROFURANTOIN
  10. IMIPRAMINE HCL [Concomitant]
     Active Substance: IMIPRAMINE HYDROCHLORIDE
  11. TRAZODONE [Concomitant]
     Active Substance: TRAZODONE HYDROCHLORIDE
  12. PREDNISONE. [Concomitant]
     Active Substance: PREDNISONE
  13. OMEPRAZOLE. [Concomitant]
     Active Substance: OMEPRAZOLE
  14. GUAIFENESIN. [Concomitant]
     Active Substance: GUAIFENESIN
  15. LORATADINE. [Concomitant]
     Active Substance: LORATADINE
  16. SULFAMETHOXAZOLE AND TRIMETHOPRIM [Concomitant]
     Active Substance: SULFAMETHOXAZOLE\TRIMETHOPRIM
  17. FERROUS SULFATE. [Concomitant]
     Active Substance: FERROUS SULFATE
  18. ALLOPURINOL. [Concomitant]
     Active Substance: ALLOPURINOL
  19. PAXIL [Concomitant]
     Active Substance: PAROXETINE HYDROCHLORIDE

REACTIONS (6)
  - Platelet count decreased [Unknown]
  - Contusion [Unknown]
  - Pulse absent [Recovered/Resolved]
  - Respiratory arrest [Fatal]
  - Pleural effusion [Unknown]
  - Oxygen saturation decreased [Unknown]

NARRATIVE: CASE EVENT DATE: 2017
